FAERS Safety Report 24555875 (Version 2)
Quarter: 2024Q4

REPORT INFORMATION
  Report Type: Spontaneous
  Country: CN (occurrence: CN)
  Receive Date: 20241028
  Receipt Date: 20241031
  Transmission Date: 20250114
  Serious: Yes (Life-Threatening, Hospitalization, Other)
  Sender: PFIZER
  Company Number: CN-PFIZER INC-PV202400137718

PATIENT
  Age: 57 Year
  Sex: Male
  Weight: 51 kg

DRUGS (4)
  1. CYTARABINE [Suspect]
     Active Substance: CYTARABINE
     Indication: Chemotherapy
     Dosage: 0.2 G, 1X/DAY
     Route: 041
     Dates: start: 20241007, end: 20241014
  2. CYTARABINE [Suspect]
     Active Substance: CYTARABINE
     Indication: Acute myeloid leukaemia
  3. DAUNORUBICIN HYDROCHLORIDE [Suspect]
     Active Substance: DAUNORUBICIN HYDROCHLORIDE
     Indication: Chemotherapy
     Dosage: 100 MG, 1X/DAY
     Route: 041
     Dates: start: 20241007, end: 20241014
  4. DAUNORUBICIN HYDROCHLORIDE [Suspect]
     Active Substance: DAUNORUBICIN HYDROCHLORIDE
     Indication: Acute myeloid leukaemia

REACTIONS (13)
  - Myelosuppression [Recovering/Resolving]
  - Cardiac failure [Unknown]
  - Cardiomyopathy [Unknown]
  - Lacunar infarction [Unknown]
  - Hyperuricaemia [Unknown]
  - Oropharyngeal pain [Unknown]
  - Dry throat [Unknown]
  - Cough [Unknown]
  - Productive cough [Unknown]
  - Depressed mood [Unknown]
  - Decreased appetite [Unknown]
  - Headache [Unknown]
  - Abdominal distension [Unknown]

NARRATIVE: CASE EVENT DATE: 20241001
